FAERS Safety Report 5634403-4 (Version None)
Quarter: 2008Q1

REPORT INFORMATION
  Report Type: 
  Country: None (occurrence: None)
  Receive Date: 20080222
  Receipt Date: 20080208
  Transmission Date: 20080703
  Serious: Yes (Hospitalization, Other)
  Sender: FDA-Public Use
  Company Number: US-ELI_LILLY_AND_COMPANY-US200802001879

PATIENT
  Age: 48 Year
  Sex: Male

DRUGS (3)
  1. GEMZAR [Suspect]
     Indication: LUNG NEOPLASM MALIGNANT
     Dosage: UNK, UNK
     Dates: start: 20071001
  2. CISPLATIN [Concomitant]
     Indication: LUNG NEOPLASM MALIGNANT
     Dates: start: 20071001
  3. AVASTIN [Concomitant]
     Indication: LUNG NEOPLASM MALIGNANT
     Dates: start: 20071001

REACTIONS (11)
  - BLOOD PRESSURE INCREASED [None]
  - COUGH [None]
  - DYSPNOEA [None]
  - FLUSHING [None]
  - HEART RATE INCREASED [None]
  - HYPERSENSITIVITY [None]
  - INFECTION [None]
  - LUNG DISORDER [None]
  - PNEUMONIA [None]
  - PNEUMONITIS [None]
  - PYREXIA [None]
